FAERS Safety Report 8818917 (Version 2)
Quarter: 2012Q4

REPORT INFORMATION
  Report Type: 
  Country: US (occurrence: US)
  Receive Date: 20121001
  Receipt Date: 20121004
  Transmission Date: 20130627
  Serious: Yes (Other)
  Sender: FDA-Public Use
  Company Number: PHEH2012US015510

PATIENT
  Sex: Female

DRUGS (2)
  1. SANDOSTATIN LAR [Suspect]
     Dosage: 30 mg, UNK
     Route: 030
  2. CABERGOLINE [Concomitant]

REACTIONS (2)
  - Neoplasm [Unknown]
  - No therapeutic response [Unknown]
